FAERS Safety Report 9253816 (Version 1)
Quarter: 2013Q2

REPORT INFORMATION
  Report Type: Spontaneous
  Country: US (occurrence: US)
  Receive Date: 20130425
  Receipt Date: 20130425
  Transmission Date: 20140414
  Serious: No
  Sender: FDA-Public Use
  Company Number: US-PFIZER INC-2013125305

PATIENT
  Age: 5 Year
  Sex: Female
  Weight: 25.4 kg

DRUGS (1)
  1. PREMARIN [Suspect]
     Indication: GENITAL LABIAL ADHESIONS
     Dosage: UNK
     Route: 067
     Dates: start: 2010

REACTIONS (3)
  - Drug administration error [Unknown]
  - Expired drug administered [Unknown]
  - Drug ineffective for unapproved indication [Unknown]
